FAERS Safety Report 24380743 (Version 4)
Quarter: 2024Q4

REPORT INFORMATION
  Report Type: Spontaneous
  Country: US (occurrence: US)
  Receive Date: 20240930
  Receipt Date: 20241211
  Transmission Date: 20250115
  Serious: No
  Sender: BRISTOL-MYERS SQUIBB COMPANY
  Company Number: US-BRISTOL-MYERS SQUIBB COMPANY-2024-154364

PATIENT
  Age: 66 Year
  Sex: Female

DRUGS (2)
  1. LENALIDOMIDE [Suspect]
     Active Substance: LENALIDOMIDE
     Indication: Follicular lymphoma stage I
     Route: 048
  2. LENALIDOMIDE [Suspect]
     Active Substance: LENALIDOMIDE
     Route: 048

REACTIONS (7)
  - Constipation [Not Recovered/Not Resolved]
  - Feeling hot [Unknown]
  - Nausea [Unknown]
  - Off label use [Unknown]
  - Insomnia [Recovering/Resolving]
  - Somnolence [Not Recovered/Not Resolved]
  - Infection [Recovering/Resolving]
